FAERS Safety Report 20890379 (Version 1)
Quarter: 2022Q2

REPORT INFORMATION
  Report Type: Report from Study
  Country: US (occurrence: US)
  Receive Date: 20220530
  Receipt Date: 20220530
  Transmission Date: 20220720
  Serious: Yes (Hospitalization, Other)
  Sender: FDA-Public Use
  Company Number: US-INSMED-2021-08247-USAA

PATIENT
  Sex: Female
  Weight: 44.898 kg

DRUGS (7)
  1. ARIKAYCE [Suspect]
     Active Substance: AMIKACIN
     Indication: Mycobacterium avium complex infection
     Dosage: 590 MILLIGRAM, QD
     Route: 055
     Dates: start: 20210329, end: 2021
  2. ARIKAYCE [Suspect]
     Active Substance: AMIKACIN
     Dosage: 590 MILLIGRAM, TIW
     Route: 055
     Dates: start: 2021, end: 2021
  3. ARIKAYCE [Suspect]
     Active Substance: AMIKACIN
     Dosage: 590 MILLIGRAM, QOD
     Route: 055
     Dates: start: 2021, end: 20211016
  4. ARIKAYCE [Suspect]
     Active Substance: AMIKACIN
     Dosage: 590 MILLIGRAM, UNK
     Route: 055
     Dates: end: 2022
  5. PREDNISONE [Concomitant]
     Active Substance: PREDNISONE
     Indication: Product used for unknown indication
     Dosage: 10 MILLIGRAM EVERY DAY AND TWICE A DAY WHEN TAKING ARIKAYCE
     Route: 065
     Dates: start: 2021
  6. AZITHROMYCIN [Concomitant]
     Active Substance: AZITHROMYCIN
     Indication: Mycobacterium avium complex infection
     Dosage: 500 MILLIGRAM, TIW (ON THE DAYS THE PATIENT TAKES ARIKAYCE)
     Route: 065
     Dates: start: 2021
  7. UMECLIDINIUM BROMIDE\VILANTEROL TRIFENATATE [Concomitant]
     Active Substance: UMECLIDINIUM BROMIDE\VILANTEROL TRIFENATATE
     Indication: Lung neoplasm malignant
     Dosage: UNK
     Dates: start: 2021

REACTIONS (24)
  - Hospitalisation [Unknown]
  - Arthritis [Unknown]
  - Chest tube insertion [Unknown]
  - Gastrointestinal disorder [Not Recovered/Not Resolved]
  - Dyschezia [Not Recovered/Not Resolved]
  - Herpes zoster [Recovered/Resolved]
  - Urinary tract infection [Not Recovered/Not Resolved]
  - Post herpetic neuralgia [Recovering/Resolving]
  - Lower respiratory tract infection [Recovered/Resolved]
  - Throat irritation [Recovered/Resolved]
  - Productive cough [Recovering/Resolving]
  - Diarrhoea [Not Recovered/Not Resolved]
  - Cough [Recovering/Resolving]
  - Wheezing [Recovered/Resolved]
  - Illness [Unknown]
  - Dyspnoea [Recovered/Resolved]
  - Product dose omission issue [Unknown]
  - Underdose [Unknown]
  - Therapy interrupted [Unknown]
  - Off label use [Unknown]
  - Drug dose omission by device [Unknown]
  - Device leakage [Unknown]
  - Device operational issue [Unknown]
  - Incorrect product administration duration [Unknown]

NARRATIVE: CASE EVENT DATE: 20210101
